FAERS Safety Report 20020951 (Version 4)
Quarter: 2022Q3

REPORT INFORMATION
  Report Type: Report from Study
  Country: US (occurrence: US)
  Receive Date: 20211101
  Receipt Date: 20220701
  Transmission Date: 20221027
  Serious: No
  Sender: FDA-Public Use
  Company Number: US-NOVARTISTESTPH-NVSC2021US249798

PATIENT
  Age: 57 Year
  Sex: Female

DRUGS (2)
  1. KESIMPTA [Suspect]
     Active Substance: OFATUMUMAB
     Indication: Multiple sclerosis
     Dosage: 20 MG, QW (BENEATH THE SKIN, USUALLY VIA INJECTION)
     Route: 058
     Dates: start: 20211021
  2. KESIMPTA [Suspect]
     Active Substance: OFATUMUMAB
     Dosage: (SECOND DOSE)
     Route: 065
     Dates: start: 20211028

REACTIONS (9)
  - Nausea [Recovered/Resolved]
  - Gait disturbance [Recovering/Resolving]
  - Back pain [Recovering/Resolving]
  - Anxiety [Not Recovered/Not Resolved]
  - Ocular hyperaemia [Recovered/Resolved]
  - Arthralgia [Unknown]
  - Stomatitis [Recovered/Resolved]
  - Asthenia [Recovering/Resolving]
  - Chills [Recovered/Resolved]

NARRATIVE: CASE EVENT DATE: 20211021
